FAERS Safety Report 9148554 (Version 1)
Quarter: 2013Q1

REPORT INFORMATION
  Report Type: Spontaneous
  Country: US (occurrence: None)
  Receive Date: 20130228
  Receipt Date: 20130228
  Transmission Date: 20140127
  Serious: No
  Sender: FDA-Public Use
  Company Number: None

PATIENT
  Age: 31 Year
  Sex: Male
  Weight: 90.72 kg

DRUGS (1)
  1. MIDAZOLAM [Suspect]
     Indication: SEDATION
     Route: 040
     Dates: start: 20130227, end: 20130227

REACTIONS (2)
  - Agitation [None]
  - Product quality issue [None]
